FAERS Safety Report 5940586-9 (Version None)
Quarter: 2008Q4

REPORT INFORMATION
  Report Type: 
  Country: None (occurrence: None)
  Receive Date: 20081103
  Receipt Date: 20081103
  Transmission Date: 20090506
  Serious: Yes (Hospitalization)
  Sender: FDA-Public Use
  Company Number: None

PATIENT
  Sex: Female
  Weight: 72.5755 kg

DRUGS (1)
  1. LAMICTAL [Suspect]
     Indication: BIPOLAR DISORDER
     Dosage: 100 MG BID PO
     Route: 048
     Dates: start: 20080811, end: 20080923

REACTIONS (4)
  - ANHEDONIA [None]
  - INTENTIONAL SELF-INJURY [None]
  - PRODUCT QUALITY ISSUE [None]
  - SUICIDAL IDEATION [None]
